APPROVED DRUG PRODUCT: BROMOCRIPTINE MESYLATE
Active Ingredient: BROMOCRIPTINE MESYLATE
Strength: EQ 5MG BASE
Dosage Form/Route: CAPSULE;ORAL
Application: A078899 | Product #001 | TE Code: AB
Applicant: ZYDUS PHARMACEUTICALS USA INC
Approved: Jul 30, 2008 | RLD: No | RS: No | Type: RX